FAERS Safety Report 10592468 (Version 3)
Quarter: 2015Q1

REPORT INFORMATION
  Report Type: Report from Study
  Country: TH (occurrence: TH)
  Receive Date: 20141119
  Receipt Date: 20150121
  Transmission Date: 20150720
  Serious: Yes (Hospitalization, Other)
  Sender: FDA-Public Use
  Company Number: PHHO2014TH014961

PATIENT
  Age: 39 Year
  Sex: Female
  Weight: 64.7 kg

DRUGS (4)
  1. JANUVIA [Concomitant]
     Active Substance: SITAGLIPTIN PHOSPHATE
     Indication: DIABETES MELLITUS
     Dosage: 1 DF(TAB), QD
     Route: 048
     Dates: start: 20131226
  2. LANTUS [Concomitant]
     Active Substance: INSULIN GLARGINE
     Indication: DIABETES MELLITUS
     Dosage: 26 U, Q8H
     Route: 058
     Dates: start: 20131213
  3. SOM230 [Suspect]
     Active Substance: PASIREOTIDE
     Indication: PITUITARY-DEPENDENT CUSHING^S SYNDROME
     Dosage: 900 UG, BID
     Route: 058
     Dates: start: 20130423, end: 20141107
  4. SOM230 [Suspect]
     Active Substance: PASIREOTIDE
     Dosage: 900 UG, BID
     Route: 058

REACTIONS (1)
  - Cholecystitis acute [Recovered/Resolved]

NARRATIVE: CASE EVENT DATE: 20141107
